FAERS Safety Report 23777911 (Version 1)
Quarter: 2024Q2

REPORT INFORMATION
  Report Type: Spontaneous
  Country: US (occurrence: None)
  Receive Date: 20240423
  Receipt Date: 20240423
  Transmission Date: 20240715
  Serious: No
  Sender: FDA-Public Use
  Company Number: None

PATIENT
  Age: 51 Year
  Sex: Male

DRUGS (17)
  1. MYCOPHENOLIC ACID [Suspect]
     Active Substance: MYCOPHENOLIC ACID
     Indication: Bone marrow transplant
     Dosage: 1000 MG TWICE A DAY ORAL
     Route: 048
     Dates: start: 20231017
  2. TACROLIMUS [Suspect]
     Active Substance: TACROLIMUS
     Indication: Bone marrow transplant
     Dosage: 2 MG TWICE A DAY ORAL
     Route: 048
     Dates: start: 20231017
  3. Entacavir 0.5 [Concomitant]
     Dates: start: 20231017
  4. Atovaquone 750 mg/5ml suspension [Concomitant]
  5. URSODIOL [Concomitant]
     Active Substance: URSODIOL
  6. MG-Pluss 133 mg [Concomitant]
  7. PREDNISONE [Concomitant]
     Active Substance: PREDNISONE
  8. POLYETHYLENE GLYCOL 3350 [Concomitant]
     Active Substance: POLYETHYLENE GLYCOL 3350
  9. PANTOPRAZOLE SODIUM [Concomitant]
     Active Substance: PANTOPRAZOLE SODIUM
  10. GABAPENTIN [Concomitant]
     Active Substance: GABAPENTIN
  11. Melatonin 3 mg [Concomitant]
  12. TAMSULOSIN [Concomitant]
     Active Substance: TAMSULOSIN
  13. Ipratropium/Albuterol inhalation [Concomitant]
  14. CARVEDILOL [Concomitant]
     Active Substance: CARVEDILOL
  15. VORICONAZOLE [Concomitant]
     Active Substance: VORICONAZOLE
  16. ACYCLOVIR [Concomitant]
     Active Substance: ACYCLOVIR
  17. AMLODIPINE BESYLATE [Concomitant]
     Active Substance: AMLODIPINE BESYLATE

REACTIONS (1)
  - Death [None]

NARRATIVE: CASE EVENT DATE: 20240331
